FAERS Safety Report 8601745-X (Version None)
Quarter: 2012Q3

REPORT INFORMATION
  Report Type: 
  Country: None (occurrence: None)
  Receive Date: 20120817
  Receipt Date: 20120504
  Transmission Date: 20120928
  Serious: No
  Sender: FDA-Public Use
  Company Number: US-BRISTOL-MYERS SQUIBB COMPANY-16426058

PATIENT
  Age: 61 Year
  Sex: Male

DRUGS (7)
  1. CALCIUM [Concomitant]
  2. CRESTOR [Concomitant]
  3. SENNA [Concomitant]
  4. SPRYCEL [Suspect]
     Indication: CHRONIC MYELOID LEUKAEMIA
     Route: 048
     Dates: start: 20111122
  5. THALOMID [Concomitant]
  6. ATENOLOL [Concomitant]
     Dosage: TABS
  7. LISINOPRIL [Concomitant]

REACTIONS (3)
  - RASH [None]
  - LACTOSE INTOLERANCE [None]
  - VENTRICULAR EXTRASYSTOLES [None]
